FAERS Safety Report 24386760 (Version 2)
Quarter: 2024Q4

REPORT INFORMATION
  Report Type: Spontaneous
  Country: US (occurrence: US)
  Receive Date: 20241002
  Receipt Date: 20241101
  Transmission Date: 20250114
  Serious: No
  Sender: AMGEN
  Company Number: US-PFIZER INC-202400263248

PATIENT
  Age: 91 Year
  Sex: Female

DRUGS (1)
  1. ENBREL [Suspect]
     Active Substance: ETANERCEPT
     Indication: Pain in extremity
     Dosage: 50 MG/ML (1 ML), ONCE A WEEK
     Route: 058

REACTIONS (2)
  - Paranasal sinus discomfort [Unknown]
  - Arthralgia [Unknown]

NARRATIVE: CASE EVENT DATE: 20240101
